FAERS Safety Report 6978762 (Version 3)
Quarter: 2015Q1

REPORT INFORMATION
  Report Type: Spontaneous
  Country: PT (occurrence: PT)
  Receive Date: 20090427
  Receipt Date: 20150326
  Transmission Date: 20150721
  Serious: Yes (Life-Threatening, Hospitalization)
  Sender: FDA-Public Use
  Company Number: PT-JNJFOC-20090404314

PATIENT
  Age: 38 Year
  Sex: Female
  Weight: 55 kg

DRUGS (2)
  1. REMICADE [Suspect]
     Active Substance: INFLIXIMAB
     Indication: ANKYLOSING SPONDYLITIS
     Route: 042
     Dates: start: 20051124, end: 20080916
  2. PACINONE [Concomitant]
     Indication: ANXIETY
     Route: 048
     Dates: start: 2005, end: 200810

REACTIONS (1)
  - Breast neoplasm [Recovered/Resolved]

NARRATIVE: CASE EVENT DATE: 200810
